FAERS Safety Report 4498723-1 (Version None)
Quarter: 2004Q3

REPORT INFORMATION
  Report Type: 
  Country: None (occurrence: None)
  Receive Date: 20040927
  Receipt Date: 20040617
  Transmission Date: 20050211
  Serious: No
  Sender: FDA-Public Use
  Company Number: USA040670494

PATIENT
  Age: 6 Year
  Sex: Female
  Weight: 35 kg

DRUGS (1)
  1. STRATTERA [Suspect]
     Dosage: 40 MG/1 DAY
     Dates: start: 20031101

REACTIONS (3)
  - DRUG EFFECT DECREASED [None]
  - SOMNOLENCE [None]
  - WEIGHT DECREASED [None]
